FAERS Safety Report 13187392 (Version 6)
Quarter: 2021Q3

REPORT INFORMATION
  Report Type: Other
  Country: CA (occurrence: CA)
  Receive Date: 20170206
  Receipt Date: 20210820
  Transmission Date: 20211014
  Serious: Yes (Hospitalization)
  Sender: FDA-Public Use
  Company Number: CA-ROCHE-1889474

PATIENT
  Age: 79 Year
  Sex: Male

DRUGS (3)
  1. XOLAIR [Suspect]
     Active Substance: OMALIZUMAB
     Indication: ASTHMA
     Route: 058
     Dates: start: 20141210
  2. XOLAIR [Suspect]
     Active Substance: OMALIZUMAB
     Route: 058
     Dates: start: 20170118
  3. XOLAIR [Suspect]
     Active Substance: OMALIZUMAB
     Route: 058
     Dates: start: 20161123

REACTIONS (15)
  - Somnolence [Unknown]
  - Eating disorder [Unknown]
  - Blood glucose decreased [Unknown]
  - Asthma [Unknown]
  - Sinus disorder [Unknown]
  - Hallucination [Unknown]
  - Depression [Unknown]
  - Forced expiratory volume decreased [Not Recovered/Not Resolved]
  - Listless [Unknown]
  - Middle insomnia [Unknown]
  - Exposure to allergen [Unknown]
  - Pneumonia [Unknown]
  - Malaise [Unknown]
  - Rib fracture [Unknown]
  - Headache [Unknown]

NARRATIVE: CASE EVENT DATE: 20150923
